FAERS Safety Report 23015940 (Version 1)
Quarter: 2023Q4

REPORT INFORMATION
  Report Type: Spontaneous
  Country: BR (occurrence: BR)
  Receive Date: 20231002
  Receipt Date: 20231002
  Transmission Date: 20240109
  Serious: Yes (Death, Hospitalization, Other)
  Sender: FDA-Public Use
  Company Number: BR-TAKEDA-2023TUS093980

PATIENT
  Age: 32 Year
  Sex: Male

DRUGS (1)
  1. ICLUSIG [Suspect]
     Active Substance: PONATINIB
     Indication: Leukaemia
     Dosage: UNK
     Route: 065

REACTIONS (3)
  - Sepsis [Fatal]
  - Loss of consciousness [Unknown]
  - Renal injury [Unknown]

NARRATIVE: CASE EVENT DATE: 20230616
